FAERS Safety Report 5922553-4 (Version None)
Quarter: 2008Q4

REPORT INFORMATION
  Report Type: 
  Country: None (occurrence: None)
  Receive Date: 20081017
  Receipt Date: 20081009
  Transmission Date: 20090506
  Serious: Yes (Hospitalization)
  Sender: FDA-Public Use
  Company Number: PHHY2008JP08882

PATIENT
  Sex: Female

DRUGS (4)
  1. COMTAN [Suspect]
     Indication: PARKINSON'S DISEASE
     Dosage: 100 MG, BID
     Route: 048
  2. L-DOPA [Concomitant]
     Indication: PARKINSON'S DISEASE
     Dosage: 300- 400 MG, 3-4 TABLETS
  3. ARTANE [Concomitant]
     Dosage: UNK
     Route: 048
  4. PRAMIPEXOLE DIHYDROCHLORIDE [Concomitant]
     Dosage: UNK
     Route: 048

REACTIONS (2)
  - ECHOLALIA [None]
  - MENTAL DISORDER [None]
